FAERS Safety Report 11660526 (Version 1)
Quarter: 2015Q4

REPORT INFORMATION
  Report Type: Spontaneous
  Country: US (occurrence: US)
  Receive Date: 20151026
  Receipt Date: 20151026
  Transmission Date: 20160304
  Serious: Yes (Life-Threatening)
  Sender: FDA-Public Use
  Company Number: US-KNIGHT THERAPEUTICS (USA) INC.-1043373

PATIENT
  Age: 11 Year
  Sex: Male

DRUGS (14)
  1. DEXAMETHASONE SODIUM PHOSPHATE. [Suspect]
     Active Substance: DEXAMETHASONE SODIUM PHOSPHATE
  2. LEVETIRACETAM. [Suspect]
     Active Substance: LEVETIRACETAM
  3. FLUOROCYTOSINE [Suspect]
     Active Substance: FLUCYTOSINE
  4. PHENOBARBITAL. [Suspect]
     Active Substance: PHENOBARBITAL
  5. LORAZEPAM. [Suspect]
     Active Substance: LORAZEPAM
  6. THIORIDAZINE HYDROCHLORIDE. [Suspect]
     Active Substance: THIORIDAZINE HYDROCHLORIDE
  7. METHYLPREDNISOLONE. [Suspect]
     Active Substance: METHYLPREDNISOLONE
  8. SULFADIAZINE. [Suspect]
     Active Substance: SULFADIAZINE
  9. VALPROATE SODIUM. [Suspect]
     Active Substance: VALPROATE SODIUM
  10. METRONIDAZOLE SODIUM [Suspect]
     Active Substance: METRONIDAZOLE SODIUM
  11. IMPAVIDO [Suspect]
     Active Substance: MILTEFOSINE
  12. FOSPHENYTOIN SODIUM. [Suspect]
     Active Substance: FOSPHENYTOIN SODIUM
  13. AZITHROMYCIN [Suspect]
     Active Substance: AZITHROMYCIN ANHYDROUS
  14. FLUCONAZOLE. [Suspect]
     Active Substance: FLUCONAZOLE

REACTIONS (4)
  - Drug ineffective for unapproved indication [Not Recovered/Not Resolved]
  - Off label use [Not Recovered/Not Resolved]
  - Multi-organ disorder [Not Recovered/Not Resolved]
  - Toxicity to various agents [Not Recovered/Not Resolved]
